FAERS Safety Report 10351290 (Version 7)
Quarter: 2016Q1

REPORT INFORMATION
  Report Type: Spontaneous
  Country: US (occurrence: US)
  Receive Date: 20140730
  Receipt Date: 20160324
  Transmission Date: 20160525
  Serious: Yes (Hospitalization, Other)
  Sender: FDA-Public Use
  Company Number: US-GLAXOSMITHKLINE-A1083092A

PATIENT
  Age: 53 Year
  Sex: Female

DRUGS (5)
  1. FLOLAN [Suspect]
     Active Substance: EPOPROSTENOL SODIUM
     Dosage: 33.4 NG/KG/MIN, CONTINUOUS
     Dates: start: 20021108
  2. REVATIO [Concomitant]
     Active Substance: SILDENAFIL CITRATE
  3. FLOLAN [Suspect]
     Active Substance: EPOPROSTENOL SODIUM
     Indication: PULMONARY ARTERIAL HYPERTENSION
     Dosage: 32.63 NG/KG/MIN
     Route: 042
     Dates: start: 20021109
  4. FLOLAN [Suspect]
     Active Substance: EPOPROSTENOL SODIUM
     Dosage: 33 NG/KG/MIN, CO
     Route: 042
  5. FLOLAN [Suspect]
     Active Substance: EPOPROSTENOL SODIUM
     Dosage: VIAL STRENGTH 1.5 MG/1ML

REACTIONS (12)
  - Complication associated with device [Unknown]
  - Haemorrhage [Unknown]
  - Limb injury [Unknown]
  - Asthenia [Unknown]
  - Dizziness [Unknown]
  - Hospitalisation [Unknown]
  - Device alarm issue [Not Recovered/Not Resolved]
  - Arthralgia [Unknown]
  - Pelvic pain [Unknown]
  - Fall [Unknown]
  - Hypotension [Unknown]
  - Blood pressure abnormal [Unknown]

NARRATIVE: CASE EVENT DATE: 20150207
